FAERS Safety Report 20831454 (Version 5)
Quarter: 2022Q3

REPORT INFORMATION
  Report Type: Report from Study
  Country: US (occurrence: US)
  Receive Date: 20220516
  Receipt Date: 20220716
  Transmission Date: 20221027
  Serious: No
  Sender: FDA-Public Use
  Company Number: US-NOVARTISTESTPH-NVSC2022US111403

PATIENT
  Age: 30 Year
  Sex: Female

DRUGS (2)
  1. KESIMPTA [Suspect]
     Active Substance: OFATUMUMAB
     Indication: Multiple sclerosis
     Dosage: 20 MG/KG, OTHER (ONCE A WEEK FOR 3 WEEKS WITH A WEEK BREAK, THEN ONCE A MONTH THEREAFTER)
     Route: 058
     Dates: start: 20220507
  2. KESIMPTA [Suspect]
     Active Substance: OFATUMUMAB
     Dosage: 2 MG, QMO
     Route: 058

REACTIONS (9)
  - Pain [Not Recovered/Not Resolved]
  - Dizziness [Recovering/Resolving]
  - Vomiting [Unknown]
  - Pyrexia [Recovering/Resolving]
  - Nausea [Unknown]
  - Fatigue [Unknown]
  - Injection site bruising [Recovering/Resolving]
  - Injection site pain [Recovering/Resolving]
  - Drug intolerance [Unknown]

NARRATIVE: CASE EVENT DATE: 20220507
